FAERS Safety Report 9655928 (Version 1)
Quarter: 2013Q4

REPORT INFORMATION
  Report Type: Spontaneous
  Country: CN (occurrence: CN)
  Receive Date: 20131030
  Receipt Date: 20131030
  Transmission Date: 20140711
  Serious: Yes (Other)
  Sender: FDA-Public Use
  Company Number: CN-ACCORD-020147

PATIENT
  Age: 58 Year
  Sex: Female

DRUGS (1)
  1. MONTELUKAST [Suspect]
     Indication: RHINITIS ALLERGIC

REACTIONS (2)
  - Haematuria [Recovered/Resolved]
  - Off label use [Unknown]
